FAERS Safety Report 17640766 (Version 1)
Quarter: 2020Q2

REPORT INFORMATION
  Report Type: Spontaneous
  Country: TR (occurrence: TR)
  Receive Date: 20200407
  Receipt Date: 20200407
  Transmission Date: 20200713
  Serious: Yes (Other)
  Sender: FDA-Public Use
  Company Number: PHHY2019TR126610

PATIENT
  Age: 19 Year
  Sex: Female

DRUGS (2)
  1. MEROPENEM. [Suspect]
     Active Substance: MEROPENEM
     Indication: PSOAS ABSCESS
     Dosage: 3X1 G/DAY
     Route: 065
  2. PIPERACILLIN AND TAZOBACTAM [Suspect]
     Active Substance: PIPERACILLIN SODIUM\TAZOBACTAM SODIUM
     Indication: PSOAS ABSCESS
     Dosage: 4.5 G, TID
     Route: 065

REACTIONS (3)
  - Drug resistance [Unknown]
  - Maternal exposure during pregnancy [Unknown]
  - Hydronephrosis [Unknown]
